FAERS Safety Report 20449491 (Version 1)
Quarter: 2022Q1

REPORT INFORMATION
  Report Type: Spontaneous
  Country: US (occurrence: US)
  Receive Date: 20220209
  Receipt Date: 20220209
  Transmission Date: 20220423
  Serious: No
  Sender: FDA-Public Use
  Company Number: US-CELGENE-USA-20220201090

PATIENT
  Sex: Male
  Weight: 86.260 kg

DRUGS (1)
  1. POMALYST [Suspect]
     Active Substance: POMALIDOMIDE
     Indication: Plasma cell myeloma
     Dosage: 4 MILLIGRAM
     Route: 048
     Dates: start: 202112

REACTIONS (3)
  - Haemorrhoids [Not Recovered/Not Resolved]
  - Influenza [Recovered/Resolved]
  - Constipation [Not Recovered/Not Resolved]
